FAERS Safety Report 17205540 (Version 1)
Quarter: 2019Q4

REPORT INFORMATION
  Report Type: Spontaneous
  Country: DE (occurrence: DE)
  Receive Date: 20191227
  Receipt Date: 20191227
  Transmission Date: 20200122
  Serious: Yes (Hospitalization)
  Sender: FDA-Public Use
  Company Number: DE-TEVA-2019-DE-1157516

PATIENT
  Age: 18 Year
  Sex: Male
  Weight: 69 kg

DRUGS (11)
  1. COTRIMOXAZOL AL FORTE [Concomitant]
     Active Substance: SULFAMETHOXAZOLE\TRIMETHOPRIM
     Dosage: MON, WED, FRI,
     Route: 048
  2. DEXAMETHASONE. [Concomitant]
     Active Substance: DEXAMETHASONE
     Dosage: 10 MG / M2, ACCORDING TO THE SCHEME, MOST RECENTLY ON JUNE 27, 2018
     Route: 042
  3. ETOPOSID [Suspect]
     Active Substance: ETOPOSIDE
     Dosage: 250 MG / M2, ACCORDING TO THE SCHEME, MOST RECENTLY ON JUNE 27, 2018
     Route: 042
  4. FLUCONAZOLE. [Concomitant]
     Active Substance: FLUCONAZOLE
     Dosage: 100 MILLIGRAM DAILY;
     Route: 048
  5. VINDESINE [Suspect]
     Active Substance: VINDESINE
     Dosage: 3 MG / M2, ACCORDING TO THE SCHEME, MOST RECENTLY ON JUNE 27, 2018
     Route: 042
  6. FILGRASTIM HEXAL 48MIO.E./0,5ML [Concomitant]
     Dosage: 48000000 IU (INTERNATIONAL UNIT) DAILY;
     Route: 042
  7. PANTOPRAZOL [Concomitant]
     Active Substance: PANTOPRAZOLE SODIUM
     Dosage: 40 MILLIGRAM DAILY;
     Route: 048
  8. ACICLOVIR [Concomitant]
     Active Substance: ACYCLOVIR
     Dosage: 1200 MILLIGRAM DAILY;
     Route: 048
  9. METHOTREXAT [Suspect]
     Active Substance: METHOTREXATE
     Dosage: 1.5 G / M2, ACCORDING TO THE SCHEME, MOST RECENTLY ON JUNE 27, 2018
     Route: 042
  10. CYTARABIN [Suspect]
     Active Substance: CYTARABINE
     Dosage: 4 G / M2, ACCORDING TO THE SCHEME, MOST RECENTLY ON JUNE 27, 2018
     Route: 042
  11. CIPROFLOXACIN. [Concomitant]
     Active Substance: CIPROFLOXACIN
     Dosage: 1000 MILLIGRAM DAILY;
     Route: 048

REACTIONS (3)
  - Localised infection [Unknown]
  - Pyrexia [Unknown]
  - Stomatitis [Unknown]
